FAERS Safety Report 15108831 (Version 1)
Quarter: 2018Q3

REPORT INFORMATION
  Report Type: Spontaneous
  Country: US (occurrence: US)
  Receive Date: 20180705
  Receipt Date: 20180705
  Transmission Date: 20181010
  Serious: No
  Sender: FDA-Public Use
  Company Number: US-JNJFOC-20180614558

PATIENT
  Age: 65 Year
  Sex: Female
  Weight: 79.38 kg

DRUGS (1)
  1. TYLENOL EXTRA STRENGTH [Suspect]
     Active Substance: ACETAMINOPHEN
     Indication: ARTHRALGIA
     Dosage: OVER THE COURSE OF 3 WEEKS
     Route: 048

REACTIONS (1)
  - Drug ineffective [Unknown]
